FAERS Safety Report 25122988 (Version 1)
Quarter: 2025Q1

REPORT INFORMATION
  Report Type: Spontaneous
  Country: US (occurrence: US)
  Receive Date: 20250326
  Receipt Date: 20250326
  Transmission Date: 20250409
  Serious: No
  Sender: BIOVITRUM
  Company Number: US-BIOVITRUM-2025-US-004032

PATIENT
  Age: 70 Year
  Sex: Female

DRUGS (1)
  1. VONJO [Suspect]
     Active Substance: PACRITINIB
     Indication: Myeloproliferative neoplasm
     Route: 048
     Dates: start: 20230614

REACTIONS (4)
  - Dizziness [Unknown]
  - Diarrhoea [Unknown]
  - Arthropathy [Unknown]
  - Product dose omission issue [Unknown]
